FAERS Safety Report 24112400 (Version 1)
Quarter: 2024Q3

REPORT INFORMATION
  Report Type: Report from Study
  Country: US (occurrence: None)
  Receive Date: 20240719
  Receipt Date: 20240719
  Transmission Date: 20241016
  Serious: Yes (Other)
  Sender: ASTRAZENECA
  Company Number: 2021A092639

PATIENT
  Age: 72 Year
  Sex: Female

DRUGS (5)
  1. TAGRISSO [Suspect]
     Active Substance: OSIMERTINIB
     Route: 048
     Dates: start: 20201018
  2. ELIQUIS [Concomitant]
     Active Substance: APIXABAN
  3. CYCLOBENZAPRINE HYDROCHLO [Concomitant]
  4. QC FOLIC ACID [Concomitant]
  5. SIMVASTATIN [Concomitant]
     Active Substance: SIMVASTATIN

REACTIONS (2)
  - Thrombosis [Not Recovered/Not Resolved]
  - Bone pain [Recovering/Resolving]
